FAERS Safety Report 6466388-5 (Version None)
Quarter: 2009Q4

REPORT INFORMATION
  Report Type: 
  Country: None (occurrence: None)
  Receive Date: 20091201
  Receipt Date: 20091201
  Transmission Date: 20100525
  Serious: Yes (Life-Threatening, Disabling)
  Sender: FDA-Public Use
  Company Number: None

PATIENT
  Age: 50 Year
  Sex: Female
  Weight: 62.1428 kg

DRUGS (1)
  1. LEVAQUIN [Suspect]
     Indication: SINUSITIS
     Dates: start: 20091122, end: 20091125

REACTIONS (13)
  - ABDOMINAL PAIN UPPER [None]
  - ARTHRALGIA [None]
  - CHEST DISCOMFORT [None]
  - EYE SWELLING [None]
  - HEART RATE INCREASED [None]
  - JOINT SWELLING [None]
  - LIP SWELLING [None]
  - OEDEMA PERIPHERAL [None]
  - PAIN IN EXTREMITY [None]
  - PARAESTHESIA [None]
  - PRURITUS GENERALISED [None]
  - TREMOR [None]
  - URTICARIA [None]
